FAERS Safety Report 5460928-0 (Version None)
Quarter: 2007Q3

REPORT INFORMATION
  Report Type: 
  Country: None (occurrence: None)
  Receive Date: 20070810
  Receipt Date: 20070111
  Transmission Date: 20080115
  Serious: Yes (Life-Threatening, Other)
  Sender: FDA-Public Use
  Company Number: 200616418BWH

PATIENT
  Sex: Female

DRUGS (3)
  1. TRASYLOL [Suspect]
     Indication: AORTIC VALVE REPLACEMENT
     Dosage: 200 ML, ONCE, INTRAVENOUS
     Route: 042
     Dates: start: 20061109
  2. TRASYLOL [Suspect]
     Indication: CORONARY ARTERY BYPASS
     Dosage: 200 ML, ONCE, INTRAVENOUS
     Route: 042
     Dates: start: 20061109
  3. PLAVIX [Concomitant]

REACTIONS (1)
  - ATRIAL THROMBOSIS [None]
